FAERS Safety Report 7821295-8 (Version None)
Quarter: 2011Q4

REPORT INFORMATION
  Report Type: 
  Country: None (occurrence: None)
  Receive Date: 20111018
  Receipt Date: 20110609
  Transmission Date: 20120403
  Serious: No
  Sender: FDA-Public Use
  Company Number: US-ASTRAZENECA-2011SE27148

PATIENT
  Age: 60 Year
  Sex: Male

DRUGS (3)
  1. ASPIRIN [Concomitant]
  2. OTC SLEEP AID [Concomitant]
  3. SYMBICORT [Suspect]
     Indication: EMPHYSEMA
     Dosage: 160/4.5 BID
     Route: 055

REACTIONS (3)
  - EYE PAIN [None]
  - DIABETES MELLITUS [None]
  - VISUAL ACUITY REDUCED [None]
